FAERS Safety Report 7480299-8 (Version None)
Quarter: 2011Q2

REPORT INFORMATION
  Report Type: 
  Country: None (occurrence: None)
  Receive Date: 20110512
  Receipt Date: 20110512
  Transmission Date: 20111010
  Serious: No
  Sender: FDA-Public Use
  Company Number: None

PATIENT
  Sex: Female

DRUGS (1)
  1. PRED FORTE [Suspect]

REACTIONS (3)
  - PRODUCT QUALITY ISSUE [None]
  - CATARACT OPERATION [None]
  - DRUG EFFECT DECREASED [None]
